FAERS Safety Report 13688415 (Version 1)
Quarter: 2017Q2

REPORT INFORMATION
  Report Type: Spontaneous
  Country: US (occurrence: US)
  Receive Date: 20170623
  Receipt Date: 20170623
  Transmission Date: 20170830
  Serious: Yes (Life-Threatening, Hospitalization, Disabling, Other)
  Sender: FDA-Public Use
  Company Number: None

PATIENT
  Age: 57 Year
  Sex: Female
  Weight: 54 kg

DRUGS (4)
  1. CLONAZEPAM. [Suspect]
     Active Substance: CLONAZEPAM
     Indication: OBSESSIVE-COMPULSIVE DISORDER
     Dosage: ?          QUANTITY:1 TABLET(S);?EVERY 4 HOURS ORAL
     Route: 048
     Dates: start: 19850601, end: 20150708
  2. CLONAZEPAM. [Suspect]
     Active Substance: CLONAZEPAM
     Indication: PANIC DISORDER
     Dosage: ?          QUANTITY:1 TABLET(S);?EVERY 4 HOURS ORAL
     Route: 048
     Dates: start: 19850601, end: 20150708
  3. SYNTHROID [Concomitant]
     Active Substance: LEVOTHYROXINE SODIUM
  4. CLONAZEPAM. [Suspect]
     Active Substance: CLONAZEPAM
     Indication: AGORAPHOBIA
     Dosage: ?          QUANTITY:1 TABLET(S);?EVERY 4 HOURS ORAL
     Route: 048
     Dates: start: 19850601, end: 20150708

REACTIONS (6)
  - Tachyphrenia [None]
  - Suicidal ideation [None]
  - Panic reaction [None]
  - Neuralgia [None]
  - Withdrawal syndrome [None]
  - Bedridden [None]

NARRATIVE: CASE EVENT DATE: 20150201
